FAERS Safety Report 4393606-X (Version None)
Quarter: 2004Q3

REPORT INFORMATION
  Report Type: 
  Country: None (occurrence: None)
  Receive Date: 20040701
  Receipt Date: 20040614
  Transmission Date: 20050211
  Serious: Yes (Hospitalization, Other)
  Sender: FDA-Public Use
  Company Number: 04-233-0596

PATIENT
  Sex: Male

DRUGS (1)
  1. ETOPOSIDE [Suspect]
     Indication: LYMPHOMA
     Dosage: 110 MG OTHER
     Dates: start: 20040505

REACTIONS (5)
  - CELLULITIS [None]
  - EPISTAXIS [None]
  - FEBRILE NEUTROPENIA [None]
  - SEPSIS [None]
  - SYNCOPE [None]
